FAERS Safety Report 12209331 (Version 1)
Quarter: 2016Q1

REPORT INFORMATION
  Report Type: Spontaneous
  Country: US (occurrence: US)
  Receive Date: 20160324
  Receipt Date: 20160324
  Transmission Date: 20160526
  Serious: No
  Sender: FDA-Public Use
  Company Number: US-CUMBERLAND PHARMACEUTICALS INC.-1049650

PATIENT
  Age: 13 Year
  Sex: Male

DRUGS (1)
  1. KRISTALOSE [Suspect]
     Active Substance: LACTULOSE

REACTIONS (3)
  - Dyspnoea [None]
  - Cough [None]
  - Urticaria [None]
